FAERS Safety Report 18104480 (Version 1)
Quarter: 2020Q3

REPORT INFORMATION
  Report Type: Spontaneous
  Country: US (occurrence: US)
  Receive Date: 20200803
  Receipt Date: 20200803
  Transmission Date: 20201103
  Serious: No
  Sender: FDA-Public Use
  Company Number: US-JNJFOC-20200739417

PATIENT
  Sex: Male
  Weight: 83.54 kg

DRUGS (3)
  1. STELARA [Suspect]
     Active Substance: USTEKINUMAB
     Indication: COLITIS ULCERATIVE
     Route: 065
     Dates: start: 20200427
  2. ENTOCORT [Concomitant]
     Active Substance: BUDESONIDE
  3. UCERIS [Concomitant]
     Active Substance: BUDESONIDE

REACTIONS (1)
  - Irritable bowel syndrome [Unknown]
